FAERS Safety Report 11022803 (Version 1)
Quarter: 2015Q2

REPORT INFORMATION
  Report Type: Spontaneous
  Country: US (occurrence: US)
  Receive Date: 20150413
  Receipt Date: 20150413
  Transmission Date: 20150821
  Serious: No
  Sender: FDA-Public Use
  Company Number: US-TEVA-553924ACC

PATIENT
  Age: 22 Year
  Sex: Female
  Weight: 64.47 kg

DRUGS (4)
  1. LEVONORGESTREL. [Suspect]
     Active Substance: LEVONORGESTREL
     Dates: start: 201405
  2. GENERRESS [Concomitant]
     Indication: CONTRACEPTION
     Dosage: UNKNOWN FORM STRENGTH
     Route: 065
  3. AFTERA [Suspect]
     Active Substance: LEVONORGESTREL
     Indication: POST COITAL CONTRACEPTION
     Dosage: 1.5 MILLIGRAM DAILY;
     Route: 048
     Dates: start: 20150321
  4. LEVONORGESTREL. [Suspect]
     Active Substance: LEVONORGESTREL
     Dosage: OCTOBER/NOVEMBER 2014 ON DATES UNKNOWN
     Dates: start: 2014

REACTIONS (2)
  - Metrorrhagia [Recovered/Resolved]
  - Lymphadenopathy [Not Recovered/Not Resolved]

NARRATIVE: CASE EVENT DATE: 201502
